FAERS Safety Report 8024399-2 (Version None)
Quarter: 2012Q1

REPORT INFORMATION
  Report Type: 
  Country: None (occurrence: None)
  Receive Date: 20120105
  Receipt Date: 20120105
  Transmission Date: 20120608
  Serious: Yes (Other)
  Sender: FDA-Public Use
  Company Number: None

PATIENT
  Age: 61 Year
  Sex: Male
  Weight: 77.11 kg

DRUGS (1)
  1. AMLODIPINE BESYLATE [Suspect]
     Dosage: 2,5 MG
     Route: 048

REACTIONS (9)
  - DYSPEPSIA [None]
  - CHEST PAIN [None]
  - GASTROOESOPHAGEAL REFLUX DISEASE [None]
  - PAIN [None]
  - EATING DISORDER [None]
  - VOMITING [None]
  - DISCOMFORT [None]
  - CHEST DISCOMFORT [None]
  - INSOMNIA [None]
